FAERS Safety Report 9507915 (Version 1)
Quarter: 2013Q3

REPORT INFORMATION
  Report Type: Spontaneous
  Country: GB (occurrence: None)
  Receive Date: 20130905
  Receipt Date: 20130905
  Transmission Date: 20140515
  Serious: Yes (Life-Threatening, Other)
  Sender: FDA-Public Use
  Company Number: GER/UKI/13/0034380

PATIENT
  Age: 26 Year
  Sex: Male

DRUGS (1)
  1. RISPERIDONE (RISPERIDONE) [Suspect]
     Indication: DELUSION
     Route: 048
     Dates: start: 20090601, end: 20130210

REACTIONS (15)
  - Drug withdrawal syndrome [None]
  - Communication disorder [None]
  - Sedation [None]
  - Disorientation [None]
  - Motor dysfunction [None]
  - Speech disorder [None]
  - Memory impairment [None]
  - Mental impairment [None]
  - Reading disorder [None]
  - Hearing impaired [None]
  - Headache [None]
  - Tachycardia [None]
  - Mental disorder [None]
  - Hypertension [None]
  - Heart injury [None]
